FAERS Safety Report 16497823 (Version 1)
Quarter: 2019Q2

REPORT INFORMATION
  Report Type: Spontaneous
  Country: CA (occurrence: CA)
  Receive Date: 20190628
  Receipt Date: 20190628
  Transmission Date: 20190711
  Serious: Yes (Other)
  Sender: FDA-Public Use
  Company Number: CA-VIIV HEALTHCARE LIMITED-CA2019AMR114761

PATIENT
  Age: 60 Year
  Sex: Male

DRUGS (5)
  1. TENOFOVIR ALAFENAMIDE [Suspect]
     Active Substance: TENOFOVIR ALAFENAMIDE
     Indication: HIV INFECTION
     Dosage: UNK
  2. FTC [Suspect]
     Active Substance: EMTRICITABINE
     Indication: HIV INFECTION
     Dosage: UNK
     Dates: start: 201711
  3. DOLUTEGRAVIR [Suspect]
     Active Substance: DOLUTEGRAVIR
     Indication: HIV INFECTION
     Dosage: UNK
     Dates: start: 201711
  4. RILPIVIRINE [Suspect]
     Active Substance: RILPIVIRINE
     Indication: HIV INFECTION
     Dosage: UNK
     Dates: start: 201711
  5. COBICISTAT [Suspect]
     Active Substance: COBICISTAT
     Indication: PRODUCT USED FOR UNKNOWN INDICATION
     Dosage: UNK
     Dates: start: 201711

REACTIONS (3)
  - Steatohepatitis [Unknown]
  - Drug-induced liver injury [Unknown]
  - Hepatitis B [Unknown]

NARRATIVE: CASE EVENT DATE: 201809
